FAERS Safety Report 4384405-3 (Version None)
Quarter: 2004Q2

REPORT INFORMATION
  Report Type: 
  Country: None (occurrence: None)
  Receive Date: 20040624
  Receipt Date: 20040602
  Transmission Date: 20050107
  Serious: Yes (Hospitalization)
  Sender: FDA-Public Use
  Company Number: US-GLAXOSMITHKLINE-A0513060A

PATIENT
  Age: 37 Year
  Sex: Male

DRUGS (4)
  1. WELLBUTRIN [Suspect]
     Indication: DRUG USE FOR UNKNOWN INDICATION
     Route: 045
  2. SEROQUEL [Concomitant]
     Dosage: 300MG TWICE PER DAY
  3. TRILEPTAL [Concomitant]
     Dosage: 600MG TWICE PER DAY
  4. NEURONTIN [Concomitant]
     Dosage: 600MG TWICE PER DAY

REACTIONS (3)
  - DRUG ABUSER [None]
  - MEDICATION ERROR [None]
  - PSYCHOTIC DISORDER [None]
